FAERS Safety Report 4481296-7 (Version None)
Quarter: 2004Q4

REPORT INFORMATION
  Report Type: 
  Country: None (occurrence: None)
  Receive Date: 20040923
  Receipt Date: 20040722
  Transmission Date: 20050328
  Serious: No
  Sender: FDA-Public Use
  Company Number: USA030639353

PATIENT
  Age: 73 Year
  Sex: Female
  Weight: 55 kg

DRUGS (7)
  1. FORTEO [Suspect]
     Indication: OSTEOPOROSIS
     Dosage: 20 UG/DAY
     Dates: start: 20030501
  2. LISPRO-. [Suspect]
  3. NORVASC (AMLODIPINE BEISLATE) [Concomitant]
  4. ALTACE [Concomitant]
  5. CALCIUM [Concomitant]
  6. AVAPRO [Concomitant]
  7. NOVOLOG [Concomitant]

REACTIONS (8)
  - ANOREXIA [None]
  - ASTHENIA [None]
  - BLOOD GLUCOSE DECREASED [None]
  - FALL [None]
  - FATIGUE [None]
  - NAUSEA [None]
  - PRURITUS GENERALISED [None]
  - VOMITING [None]
